FAERS Safety Report 11991388 (Version 2)
Quarter: 2016Q4

REPORT INFORMATION
  Report Type: Spontaneous
  Country: US (occurrence: US)
  Receive Date: 20160203
  Receipt Date: 20161025
  Transmission Date: 20170206
  Serious: Yes (Other)
  Sender: FDA-Public Use
  Company Number: US-JNJFOC-20160106383

PATIENT
  Sex: Male
  Weight: 153.41 kg

DRUGS (1)
  1. RISPERDAL [Suspect]
     Active Substance: RISPERIDONE
     Indication: IMPULSE-CONTROL DISORDER
     Route: 048
     Dates: start: 2002, end: 2006

REACTIONS (2)
  - Gynaecomastia [Recovered/Resolved]
  - Abnormal weight gain [Unknown]

NARRATIVE: CASE EVENT DATE: 2003
